FAERS Safety Report 8027431-5 (Version None)
Quarter: 2012Q1

REPORT INFORMATION
  Report Type: 
  Country: None (occurrence: None)
  Receive Date: 20120106
  Receipt Date: 20111223
  Transmission Date: 20120608
  Serious: Yes (Death, Hospitalization)
  Sender: FDA-Public Use
  Company Number: FR-SANOFI-AVENTIS-2011SA084344

PATIENT
  Age: 92 Year
  Sex: Female

DRUGS (8)
  1. RISPERDAL [Suspect]
     Indication: HALLUCINATION
     Route: 048
  2. IRBESARTAN [Suspect]
     Route: 048
  3. TANAKAN [Concomitant]
     Route: 048
  4. RISPERDAL [Suspect]
     Indication: DEMENTIA
     Route: 048
  5. ACETAMINOPHEN [Concomitant]
     Route: 048
  6. ATORVASTATIN CALCIUM [Concomitant]
     Route: 048
  7. LASIX [Suspect]
     Route: 048
  8. PREVISCAN [Suspect]
     Indication: ATRIAL FIBRILLATION
     Route: 048

REACTIONS (14)
  - CRANIOCEREBRAL INJURY [None]
  - MUSCULOSKELETAL PAIN [None]
  - FACIAL BONES FRACTURE [None]
  - UNRESPONSIVE TO STIMULI [None]
  - HAEMATOMA [None]
  - HEART RATE IRREGULAR [None]
  - AREFLEXIA [None]
  - LOSS OF CONSCIOUSNESS [None]
  - PULMONARY OEDEMA [None]
  - FALL [None]
  - JAW FRACTURE [None]
  - SUBARACHNOID HAEMORRHAGE [None]
  - WOUND [None]
  - ECCHYMOSIS [None]
